FAERS Safety Report 5389557-4 (Version None)
Quarter: 2007Q3

REPORT INFORMATION
  Report Type: 
  Country: None (occurrence: None)
  Receive Date: 20070717
  Receipt Date: 20070705
  Transmission Date: 20080115
  Serious: Yes (Hospitalization)
  Sender: FDA-Public Use
  Company Number: JP-PFIZER INC-2007048959

PATIENT
  Sex: Male
  Weight: 48 kg

DRUGS (14)
  1. IRINOTECAN HCL [Suspect]
     Indication: RECTAL CANCER
     Dates: start: 20070507, end: 20070521
  2. FLUOROURACIL [Suspect]
     Indication: RECTAL CANCER
     Route: 042
     Dates: start: 20070507, end: 20070521
  3. FLUOROURACIL [Suspect]
     Route: 042
     Dates: start: 20070507, end: 20070521
  4. DECADRON [Suspect]
     Indication: PREMEDICATION
     Dates: start: 20070507, end: 20070521
  5. NAUZELIN [Concomitant]
     Indication: NAUSEA
     Route: 048
     Dates: start: 20070527, end: 20070528
  6. LEUCOVORIN CALCIUM [Concomitant]
     Dates: start: 20070507, end: 20070521
  7. KYTRIL [Concomitant]
     Indication: PREMEDICATION
     Dates: start: 20070507, end: 20070521
  8. GASTER [Concomitant]
     Indication: PREMEDICATION
     Dates: start: 20070507, end: 20070521
  9. HEPARIN SODIUM [Concomitant]
     Indication: PREMEDICATION
     Route: 042
     Dates: start: 20070507, end: 20070521
  10. MAGNESIUM OXIDE [Concomitant]
     Indication: CONSTIPATION PROPHYLAXIS
     Route: 048
     Dates: start: 20070507
  11. DAI-KENCHU-TO [Concomitant]
     Indication: CONSTIPATION PROPHYLAXIS
     Route: 048
     Dates: start: 20070507
  12. SELBEX [Concomitant]
     Indication: ABDOMINAL PAIN UPPER
     Route: 048
     Dates: start: 20070507
  13. OXYCONTIN [Concomitant]
     Route: 048
     Dates: start: 20070507
  14. DECADRON [Concomitant]
     Route: 048

REACTIONS (1)
  - GASTRIC ULCER HAEMORRHAGE [None]
